FAERS Safety Report 17129661 (Version 2)
Quarter: 2020Q2

REPORT INFORMATION
  Report Type: Report from Study
  Country: US (occurrence: US)
  Receive Date: 20191209
  Receipt Date: 20200512
  Transmission Date: 20200713
  Serious: Yes (Hospitalization)
  Sender: FDA-Public Use
  Company Number: US-ROCHE-2486921

PATIENT
  Age: 75 Year
  Sex: Female
  Weight: 58.5 kg

DRUGS (2)
  1. ATEZOLIZUMAB. [Suspect]
     Active Substance: ATEZOLIZUMAB
     Indication: OVARIAN CANCER
     Dosage: MOST RECENT DOSE ON 24/OCT/2019 1600MG
     Route: 042
     Dates: start: 20190131
  2. LIPOSOMAL DOXORUBICIN HYDROCHLORIDE [Suspect]
     Active Substance: DOXORUBICIN HYDROCHLORIDE
     Indication: OVARIAN CANCER
     Dosage: MOST RECENT DOSE ON 10/OCT/2019 49 MG
     Route: 042
     Dates: start: 20190131

REACTIONS (4)
  - Fatigue [Recovering/Resolving]
  - Acidosis [Recovering/Resolving]
  - Dyspnoea [Recovered/Resolved]
  - Hypoxia [Recovering/Resolving]

NARRATIVE: CASE EVENT DATE: 20191107
